FAERS Safety Report 6223405-5 (Version None)
Quarter: 2009Q2

REPORT INFORMATION
  Report Type: 
  Country: None (occurrence: None)
  Receive Date: 20090611
  Receipt Date: 20090601
  Transmission Date: 20091009
  Serious: Yes (Other)
  Sender: FDA-Public Use
  Company Number: US-ELI_LILLY_AND_COMPANY-US200902005991

PATIENT
  Sex: Female

DRUGS (12)
  1. FORTEO [Suspect]
     Indication: OSTEOPOROSIS PROPHYLAXIS
     Dosage: 20 UG, DAILY (1/D)
     Route: 058
     Dates: start: 20080930, end: 20090204
  2. SYNTHROID [Concomitant]
  3. ATIVAN [Concomitant]
  4. VITAMINS /90003601/ [Concomitant]
  5. GLUCOSAMINE W/CHONDROITIN [Concomitant]
  6. LUTEIN [Concomitant]
  7. ZINC [Concomitant]
  8. CALCIUM/N/A/ [Concomitant]
  9. MAGNESIUM SULFATE [Concomitant]
  10. VITAMIN A [Concomitant]
  11. ASPIRIN [Concomitant]
  12. LOVAZA [Concomitant]

REACTIONS (9)
  - BONE DISORDER [None]
  - BURNING SENSATION [None]
  - DRUG HYPERSENSITIVITY [None]
  - ERYTHEMA [None]
  - EYE SWELLING [None]
  - FEELING ABNORMAL [None]
  - RASH [None]
  - SKIN EXFOLIATION [None]
  - SWELLING FACE [None]
